FAERS Safety Report 8622676 (Version 2)
Quarter: 2014Q1

REPORT INFORMATION
  Report Type: Spontaneous
  Country: US (occurrence: None)
  Receive Date: 20120323
  Receipt Date: 20130305
  Transmission Date: 20141002
  Serious: Yes (Other)
  Sender: FDA-Public Use
  Company Number: 163-21880-11083054

PATIENT
  Age: 86 Year
  Sex: Female
  Weight: 45.81 kg

DRUGS (14)
  1. REVLIMID [Suspect]
     Indication: PLASMA CELL MYELOMA
     Dosage: 10 MG, DAILY X 3 WEEKS ON, 1 WEEK OFF, PO
     Route: 048
     Dates: start: 20110623
  2. DEXAMETHASONE (DEXAMETHASONE) (4 MILLIGRAM, TABLETS) [Concomitant]
  3. ATENOLOL (TABLETS) [Concomitant]
  4. IMODIUM A-D (LOPERAMIDE HYDROCHLORIDE) (TABLETS) [Concomitant]
  5. LOVASTATIN (TABLETS) [Concomitant]
  6. METAMUCIL [Concomitant]
  7. TYLENOL PM (TABLETS) [Concomitant]
  8. ASPIRIN (ACETYLSALICYLIC ACID) [Concomitant]
  9. BLOOD (BLOOD AND RELATED PRODUCTS) [Concomitant]
  10. FOSAMAX (ALENDRONATE SODIUM) TABLETS [Concomitant]
  11. CALCIUM PLUS VITAMIN D (CALCIUM D3 ^STADA^) (TABLETS) [Concomitant]
  12. FORTICAL (LEKOVIT CA) (AEROSOL FOR INHALATION) [Concomitant]
  13. ZOMETA (ZOLEDRONIC ACID) (INJECTION) [Concomitant]
  14. CIPRO (CIPROFLOXACIN) [Concomitant]

REACTIONS (2)
  - Platelet count decreased [None]
  - Renal impairment [None]
